FAERS Safety Report 10219888 (Version 1)
Quarter: 2014Q2

REPORT INFORMATION
  Report Type: Report from Study
  Country: ES (occurrence: ES)
  Receive Date: 20140605
  Receipt Date: 20140605
  Transmission Date: 20141212
  Serious: Yes (Other)
  Sender: FDA-Public Use
  Company Number: ES-BAXTER-2014BAX029329

PATIENT
  Sex: 0

DRUGS (5)
  1. GENOXAL 1 G INYECTABLE [Suspect]
     Indication: LYMPHOMA
     Route: 065
  2. RITUXIMAB [Suspect]
     Indication: LYMPHOMA
     Route: 065
  3. DOXORUBICIN [Suspect]
     Indication: LYMPHOMA
     Route: 065
  4. VINCRISTINE [Suspect]
     Indication: LYMPHOMA
     Route: 065
  5. PREDNISONE [Suspect]
     Indication: LYMPHOMA
     Route: 065

REACTIONS (1)
  - Disease recurrence [Unknown]
